FAERS Safety Report 13318230 (Version 1)
Quarter: 2017Q1

REPORT INFORMATION
  Report Type: Spontaneous
  Country: SG (occurrence: SG)
  Receive Date: 20170310
  Receipt Date: 20170310
  Transmission Date: 20170428
  Serious: Yes (Death, Other)
  Sender: FDA-Public Use
  Company Number: SG-B.I. PHARMACEUTICALS,INC./RIDGEFIELD-2017-BI-013825

PATIENT
  Age: 61 Year
  Sex: Female

DRUGS (4)
  1. CEFAZOLIN [Suspect]
     Active Substance: CEFAZOLIN
     Indication: PRODUCT USED FOR UNKNOWN INDICATION
     Route: 065
     Dates: start: 20131020, end: 20131118
  2. TRAJENTA [Suspect]
     Active Substance: LINAGLIPTIN
     Indication: PRODUCT USED FOR UNKNOWN INDICATION
     Dosage: SINGLE DOSE
     Route: 065
     Dates: start: 20131122
  3. OMNIPAQUE [Suspect]
     Active Substance: IOHEXOL
     Indication: SCAN WITH CONTRAST
     Route: 042
  4. METOCLOPRAMIDE. [Suspect]
     Active Substance: METOCLOPRAMIDE
     Indication: PRODUCT USED FOR UNKNOWN INDICATION
     Dosage: SINGLE DOSE
     Route: 065
     Dates: start: 20131122

REACTIONS (2)
  - Sepsis [Fatal]
  - Stevens-Johnson syndrome [Unknown]
